FAERS Safety Report 9250454 (Version 1)
Quarter: 2013Q1

REPORT INFORMATION
  Report Type: Spontaneous
  Country: US (occurrence: None)
  Receive Date: 20130305
  Receipt Date: 20130305
  Transmission Date: 20140127
  Serious: Yes (Other)
  Sender: FDA-Public Use
  Company Number: 163-21880-12060504

PATIENT
  Age: 67 Year
  Sex: Male

DRUGS (5)
  1. REVLIMID [Suspect]
     Indication: PLASMA CELL MYELOMA
     Dosage: 25 MG, 1 IN 1 D, PO
     Route: 048
     Dates: start: 201008, end: 2010
  2. METOPROLOL (METOPROLOL) (UNKNOWN) [Concomitant]
  3. AMLODIPINE (AMLODIPINE) (UNKNOWN) [Concomitant]
  4. ZOMETA (ZOLEDRONIC ACID) (UNKNOWN) [Concomitant]
  5. CALCIUM + VITAMIN D (LEKOVIT CA) (UNKNOWN) [Concomitant]

REACTIONS (2)
  - Cholecystitis [None]
  - Diarrhoea [None]
